FAERS Safety Report 6228348-9 (Version None)
Quarter: 2009Q2

REPORT INFORMATION
  Report Type: 
  Country: None (occurrence: None)
  Receive Date: 20090612
  Receipt Date: 20090601
  Transmission Date: 20091009
  Serious: Yes (Other)
  Sender: FDA-Public Use
  Company Number: JP-PFIZER INC-2009226323

PATIENT
  Age: 58 Year

DRUGS (2)
  1. ZOLOFT [Suspect]
     Route: 048
  2. TOLEDOMIN [Concomitant]

REACTIONS (5)
  - ACTIVITIES OF DAILY LIVING IMPAIRED [None]
  - ANOREXIA [None]
  - APATHY [None]
  - INSOMNIA [None]
  - VISION BLURRED [None]
